FAERS Safety Report 19385518 (Version 1)
Quarter: 2021Q2

REPORT INFORMATION
  Report Type: Spontaneous
  Country: US (occurrence: US)
  Receive Date: 20210608
  Receipt Date: 20210608
  Transmission Date: 20210717
  Serious: Yes (Hospitalization, Other)
  Sender: FDA-Public Use
  Company Number: US-AUROBINDO-08-AUR-03222

PATIENT
  Age: 71 Year
  Sex: Male
  Weight: 52 kg

DRUGS (1)
  1. METFORMIN [Suspect]
     Active Substance: METFORMIN HYDROCHLORIDE
     Indication: DIABETES MELLITUS
     Dosage: UNK UNK,UNK,
     Route: 065

REACTIONS (4)
  - Vomiting [Unknown]
  - Acute kidney injury [Unknown]
  - Lactic acidosis [Unknown]
  - Nausea [Unknown]
